FAERS Safety Report 10753684 (Version 2)
Quarter: 2015Q1

REPORT INFORMATION
  Report Type: Spontaneous
  Country: DK (occurrence: None)
  Receive Date: 20150129
  Receipt Date: 20150210
  Transmission Date: 20150721
  Serious: Yes (Death, Life-Threatening, Other)
  Sender: FDA-Public Use
  Company Number: 2719313

PATIENT
  Age: 80 Year
  Sex: Female

DRUGS (9)
  1. PREGABALIN. [Concomitant]
     Active Substance: PREGABALIN
  2. UNIKALK BASIC [Concomitant]
  3. CIPROXIN [Concomitant]
     Active Substance: CIPROFLOXACIN
  4. NITRAZEPAM [Concomitant]
     Active Substance: NITRAZEPAM
  5. DIPYRIDAMOL [Concomitant]
  6. LEVETIRACETAM. [Concomitant]
     Active Substance: LEVETIRACETAM
  7. ALPRAZOLAM. [Concomitant]
     Active Substance: ALPRAZOLAM
  8. MEROPENEM. [Suspect]
     Active Substance: MEROPENEM
     Indication: SEPSIS
     Dosage: 1 G GRAM(S), UNKNOWN, INTRAVENOUS (NOT OTHERWISE SPECIFIED)?
     Route: 042
     Dates: start: 20140717, end: 20140717
  9. CYANOCOBALAMIN W/PYRIDOXINE HCL/DICLOFENAC SO [Concomitant]
     Active Substance: CYANOCOBALAMIN\DICLOFENAC SODIUM\PYRIDOXINE HYDROCHLORIDE\THIAMINE MONONITRATE

REACTIONS (9)
  - Hypotension [None]
  - Angioedema [None]
  - Arrhythmia [None]
  - Anaphylactic shock [None]
  - Pulmonary embolism [None]
  - Dialysis [None]
  - Cyanosis [None]
  - Blood potassium increased [None]
  - Cardiac arrest [None]

NARRATIVE: CASE EVENT DATE: 20140717
